FAERS Safety Report 9608774 (Version 1)
Quarter: 2013Q4

REPORT INFORMATION
  Report Type: Spontaneous
  Country: CA (occurrence: None)
  Receive Date: 20131007
  Receipt Date: 20131007
  Transmission Date: 20140711
  Serious: Yes (Life-Threatening)
  Sender: FDA-Public Use
  Company Number: AMAG201300157

PATIENT
  Age: 44 Year
  Sex: Female

DRUGS (3)
  1. FERAHEME [Suspect]
     Indication: IRON DEFICIENCY ANAEMIA
     Route: 042
     Dates: start: 20130722, end: 20130722
  2. LEVOTHYROXINE (LEVOTHYROXINE SODIUM) [Concomitant]
  3. TRAZODONE (TRAZODONE) [Concomitant]

REACTIONS (4)
  - Chest discomfort [None]
  - Flushing [None]
  - Pruritus generalised [None]
  - Chills [None]
